FAERS Safety Report 5121470-X (Version None)
Quarter: 2006Q4

REPORT INFORMATION
  Report Type: 
  Country: None (occurrence: None)
  Receive Date: 20061006
  Receipt Date: 20060926
  Transmission Date: 20070319
  Serious: Yes (Hospitalization)
  Sender: FDA-Public Use
  Company Number: US-JNJFOC-20060906525

PATIENT
  Sex: Female
  Weight: 107.5 kg

DRUGS (1)
  1. REMICADE [Suspect]
     Indication: RHEUMATOID ARTHRITIS
     Dosage: PATIENT IS TAKING 9 DIFFERENT UNIDENTIFIED MEDICATIONS.
     Route: 042

REACTIONS (3)
  - ANAEMIA [None]
  - PNEUMONIA [None]
  - RENAL DISORDER [None]
